FAERS Safety Report 6516041-4 (Version None)
Quarter: 2009Q4

REPORT INFORMATION
  Report Type: 
  Country: None (occurrence: None)
  Receive Date: 20091223
  Receipt Date: 20090619
  Transmission Date: 20100525
  Serious: No
  Sender: FDA-Public Use
  Company Number: US-ABBOTT-09P-163-0581146-00

PATIENT
  Sex: Male

DRUGS (3)
  1. LUPRON DEPOT [Suspect]
     Indication: PROSTATE CANCER
     Dates: start: 20010601, end: 20080101
  2. LUPRON DEPOT [Suspect]
     Indication: PROSTATE CANCER
     Dates: start: 20080101
  3. MEGACE [Concomitant]
     Indication: DRUG USE FOR UNKNOWN INDICATION

REACTIONS (1)
  - HOT FLUSH [None]
